FAERS Safety Report 5251788-1 (Version None)
Quarter: 2007Q1

REPORT INFORMATION
  Report Type: 
  Country: None (occurrence: None)
  Receive Date: 20070228
  Receipt Date: 20070216
  Transmission Date: 20070707
  Serious: Yes (Other)
  Sender: FDA-Public Use
  Company Number: US-PFIZER INC-2007013888

PATIENT
  Age: 75 Year
  Sex: Female
  Weight: 86.2 kg

DRUGS (2)
  1. CHANTIX [Suspect]
     Indication: SMOKING CESSATION THERAPY
  2. ARTHROTEC [Concomitant]

REACTIONS (2)
  - BENIGN BREAST NEOPLASM [None]
  - HAEMATOCHEZIA [None]
